FAERS Safety Report 5252508-7 (Version None)
Quarter: 2007Q1

REPORT INFORMATION
  Report Type: 
  Country: None (occurrence: None)
  Receive Date: 20070301
  Receipt Date: 20070108
  Transmission Date: 20070707
  Serious: Yes (Hospitalization)
  Sender: FDA-Public Use
  Company Number: US-BRISTOL-MYERS SQUIBB COMPANY-13635420

PATIENT
  Sex: Male

DRUGS (3)
  1. ERBITUX [Suspect]
     Route: 042
     Dates: start: 20061201, end: 20061201
  2. BENADRYL [Concomitant]
     Indication: PREMEDICATION
     Dates: start: 20061201, end: 20061201
  3. RADIATION THERAPY [Concomitant]

REACTIONS (1)
  - INFUSION RELATED REACTION [None]
